FAERS Safety Report 12127751 (Version 1)
Quarter: 2016Q1

REPORT INFORMATION
  Report Type: Spontaneous
  Country: US (occurrence: US)
  Receive Date: 20160229
  Receipt Date: 20160229
  Transmission Date: 20160526
  Serious: Yes (Other)
  Sender: FDA-Public Use
  Company Number: US-BRISTOL-MYERS SQUIBB COMPANY-BMS-2016-014054

PATIENT
  Age: 28 Year
  Sex: Female

DRUGS (2)
  1. ABILIFY [Suspect]
     Active Substance: ARIPIPRAZOLE
     Indication: DEPRESSION
     Dosage: 5 MG, UNK
     Route: 048
     Dates: end: 20160219
  2. ABILIFY [Suspect]
     Active Substance: ARIPIPRAZOLE
     Indication: BIPOLAR DISORDER
     Dosage: 20 MG, UNK
     Route: 048
     Dates: end: 20160219

REACTIONS (8)
  - Impaired gastric emptying [Not Recovered/Not Resolved]
  - Postural orthostatic tachycardia syndrome [Not Recovered/Not Resolved]
  - Dehydration [Not Recovered/Not Resolved]
  - Anxiety [Recovered/Resolved]
  - Weight increased [Recovered/Resolved]
  - Panic reaction [Recovered/Resolved]
  - Off label use [Unknown]
  - Hunger [Unknown]
